FAERS Safety Report 5456149-8 (Version None)
Quarter: 2007Q3

REPORT INFORMATION
  Report Type: 
  Country: None (occurrence: None)
  Receive Date: 20070918
  Receipt Date: 20070702
  Transmission Date: 20080115
  Serious: Yes (Hospitalization)
  Sender: FDA-Public Use
  Company Number: US-ASTRAZENECA-2006UW23193

PATIENT
  Age: 513 Month
  Sex: Female
  Weight: 100 kg

DRUGS (3)
  1. SEROQUEL [Suspect]
     Indication: DEPRESSION
     Route: 048
     Dates: start: 20030811
  2. GEODON [Concomitant]
  3. HALDOL [Concomitant]

REACTIONS (5)
  - CEREBRAL HAEMORRHAGE [None]
  - CEREBROVASCULAR ACCIDENT [None]
  - GESTATIONAL DIABETES [None]
  - HAEMATEMESIS [None]
  - TYPE 2 DIABETES MELLITUS [None]
